FAERS Safety Report 4367161-4 (Version None)
Quarter: 2004Q2

REPORT INFORMATION
  Report Type: 
  Country: None (occurrence: None)
  Receive Date: 20040528
  Receipt Date: 20010703
  Transmission Date: 20050107
  Serious: Yes (Other)
  Sender: FDA-Public Use
  Company Number: US-ROCHE-263687

PATIENT
  Age: 59 Year
  Sex: Female
  Weight: 91.2 kg

DRUGS (7)
  1. XENICAL [Suspect]
     Indication: OBESITY
     Route: 048
     Dates: start: 20010625, end: 20010702
  2. XENICAL [Suspect]
     Route: 048
     Dates: start: 20010702
  3. XENICAL [Suspect]
     Route: 048
     Dates: start: 20040115
  4. PREMPRO [Concomitant]
     Indication: MENOPAUSE
     Route: 048
  5. CELEXA [Concomitant]
     Route: 048
  6. CELEBREX [Concomitant]
     Indication: ARTHRITIS
     Route: 048
  7. MULTI-VITAMIN [Concomitant]
     Route: 048

REACTIONS (6)
  - DRUG INEFFECTIVE [None]
  - INITIAL INSOMNIA [None]
  - JOINT SURGERY [None]
  - NAUSEA [None]
  - POSTMENOPAUSAL HAEMORRHAGE [None]
  - TREATMENT NONCOMPLIANCE [None]
